FAERS Safety Report 6752243-X (Version None)
Quarter: 2010Q2

REPORT INFORMATION
  Report Type: 
  Country: None (occurrence: None)
  Receive Date: 20100602
  Receipt Date: 20100526
  Transmission Date: 20101027
  Serious: Yes (Other)
  Sender: FDA-Public Use
  Company Number: RS-JNJFOC-20100510044

PATIENT
  Age: 1 Decade
  Sex: Male

DRUGS (4)
  1. CONCERTA [Suspect]
     Indication: ATTENTION DEFICIT/HYPERACTIVITY DISORDER
     Dosage: ONCE IN MORNING
     Route: 048
  2. TEGRETOL [Concomitant]
     Indication: EPILEPSY
     Route: 065
  3. RIVOTRIL [Concomitant]
     Indication: EPILEPSY
     Route: 065
  4. VALPROIC ACID [Concomitant]
     Indication: EPILEPSY
     Route: 065

REACTIONS (3)
  - ABASIA [None]
  - DECREASED APPETITE [None]
  - MALAISE [None]
